FAERS Safety Report 8975778 (Version 1)
Quarter: 2012Q4

REPORT INFORMATION
  Report Type: 
  Country: US (occurrence: US)
  Receive Date: 20121219
  Receipt Date: 20121219
  Transmission Date: 20130627
  Serious: Yes (Other)
  Sender: FDA-Public Use
  Company Number: US-ROCHE-784963

PATIENT
  Sex: Female
  Weight: 59.02 kg

DRUGS (1)
  1. ACCUTANE [Suspect]
     Indication: ACNE
     Route: 065
     Dates: start: 19821025, end: 198303

REACTIONS (8)
  - Crohn^s disease [Unknown]
  - Osteoporosis [Unknown]
  - Cataract [Unknown]
  - Inflammatory bowel disease [Unknown]
  - Intestinal obstruction [Unknown]
  - Pyoderma gangrenosum [Unknown]
  - Erythema nodosum [Unknown]
  - Depression [Unknown]
